FAERS Safety Report 7580331-7 (Version None)
Quarter: 2011Q2

REPORT INFORMATION
  Report Type: 
  Country: None (occurrence: None)
  Receive Date: 20110629
  Receipt Date: 20110621
  Transmission Date: 20111010
  Serious: Yes (Other)
  Sender: FDA-Public Use
  Company Number: AU-ROCHE-777927

PATIENT
  Sex: Female
  Weight: 84 kg

DRUGS (10)
  1. ACTEMRA [Suspect]
     Route: 042
     Dates: start: 20110310
  2. ACTEMRA [Suspect]
     Route: 042
     Dates: start: 20110210
  3. PREDNISOLONE [Concomitant]
  4. TOCILIZUMAB [Concomitant]
     Route: 042
  5. PLAQUENIL [Concomitant]
     Dosage: 400 DAILY
     Route: 048
  6. ATACAND [Concomitant]
     Dosage: DOSE 16 MG DAILY
  7. ACTEMRA [Suspect]
     Indication: RHEUMATOID ARTHRITIS
     Dosage: FORM: INFUSION
     Route: 042
     Dates: start: 20110114
  8. ARAVA [Concomitant]
     Dosage: DOSE: 10 DAILY.
     Route: 048
  9. ACTEMRA [Suspect]
     Route: 042
     Dates: start: 20110407
  10. METHOTREXATE [Concomitant]

REACTIONS (2)
  - CHEST PAIN [None]
  - MYOCARDIAL INFARCTION [None]
